FAERS Safety Report 7757046-5 (Version None)
Quarter: 2011Q3

REPORT INFORMATION
  Report Type: 
  Country: None (occurrence: None)
  Receive Date: 20110916
  Receipt Date: 20110908
  Transmission Date: 20111222
  Serious: Yes (Other)
  Sender: FDA-Public Use
  Company Number: JP-PFIZER INC-2011112982

PATIENT
  Age: 47 Year
  Sex: Male

DRUGS (26)
  1. ARGATROBAN [Suspect]
     Dosage: 50 MG, UNK
     Route: 041
     Dates: start: 20110416, end: 20110416
  2. ARGATROBAN [Suspect]
     Dosage: 40 MG, UNK
     Route: 041
     Dates: start: 20110419, end: 20110422
  3. HEPARIN SODIUM [Concomitant]
     Dosage: 12 KU
     Route: 041
     Dates: start: 20110417, end: 20110420
  4. HEPARIN SODIUM [Concomitant]
     Dosage: 10 KU
     Route: 041
     Dates: start: 20110425, end: 20110426
  5. VITAMEDIN CAPSULE [Concomitant]
     Indication: NUTRITIONAL SUPPORT
     Dosage: 3 CAP
     Route: 048
     Dates: start: 20110421
  6. LIPITOR [Concomitant]
     Indication: HYPERLIPIDAEMIA
     Dosage: 10 MG, UNK
     Route: 048
     Dates: start: 20110423
  7. PLETAL [Suspect]
     Dosage: 300 MG, UNK
     Route: 048
     Dates: end: 20110503
  8. WARFARIN POTASSIUM [Concomitant]
     Indication: CEREBRAL INFARCTION
     Dosage: 2 MG, UNK
     Route: 048
     Dates: start: 20110426, end: 20110427
  9. SALIPEX [Concomitant]
     Indication: HYPERTENSION
     Dosage: UNK
     Route: 051
     Dates: start: 20110413, end: 20110425
  10. FAMOTIDINE [Concomitant]
     Dosage: UNK
     Route: 048
     Dates: start: 20110415, end: 20110427
  11. ARGATROBAN [Suspect]
     Dosage: 60 MG, UNK
     Route: 041
     Dates: start: 20110417, end: 20110418
  12. PLETAL [Suspect]
     Indication: CEREBRAL INFARCTION
     Dosage: 300 MG, UNK
     Route: 048
     Dates: start: 20110414, end: 20110427
  13. HEPARIN SODIUM [Concomitant]
     Indication: CEREBRAL INFARCTION
     Dosage: 10 KU
     Route: 041
     Dates: start: 20110416, end: 20110416
  14. HEPARIN SODIUM [Concomitant]
     Dosage: 15 KU
     Route: 041
     Dates: start: 20110421, end: 20110424
  15. EDARAVONE [Suspect]
     Indication: CEREBRAL INFARCTION
     Dosage: 60 MG DAILY
     Route: 041
     Dates: start: 20110413, end: 20110426
  16. ARGATROBAN [Suspect]
     Dosage: 20 MG, UNK
     Route: 041
     Dates: start: 20110415, end: 20110415
  17. ARGATROBAN [Suspect]
     Dosage: 20 MG, UNK
     Route: 041
     Dates: start: 20110426, end: 20110427
  18. HUMULIN R [Concomitant]
     Indication: DIABETES MELLITUS
     Dosage: UNK
     Route: 051
     Dates: start: 20110413
  19. CEFTRIAXONE SODIUM [Concomitant]
     Indication: PNEUMONIA
     Dosage: 2 G, UNK
     Route: 051
     Dates: start: 20110426, end: 20110502
  20. ARGATROBAN [Suspect]
     Indication: CEREBRAL INFARCTION
     Dosage: 60 MG, UNK
     Route: 041
     Dates: start: 20110413, end: 20110414
  21. SULBACTAM SODIUM [Concomitant]
     Indication: PNEUMONIA
     Dosage: 3 G, UNK
     Route: 051
     Dates: start: 20110416, end: 20110420
  22. ARGATROBAN [Suspect]
     Dosage: 30 MG, UNK
     Route: 041
     Dates: start: 20110423, end: 20110425
  23. FAMOTIDINE [Concomitant]
     Indication: PROPHYLAXIS
     Dosage: 40 MG, UNK
     Route: 051
     Dates: start: 20110413, end: 20110414
  24. VICCILIN [Concomitant]
     Indication: PNEUMONIA
     Dosage: 2 G, UNK
     Route: 051
     Dates: start: 20110420, end: 20110424
  25. CINAL [Concomitant]
     Indication: NUTRITIONAL SUPPORT
     Dosage: 3 G, UNK
     Route: 048
     Dates: start: 20110421
  26. TAIPERACILIN [Concomitant]
     Indication: PNEUMONIA
     Dosage: 2 G, UNK
     Route: 051
     Dates: start: 20110425, end: 20110425

REACTIONS (1)
  - DUODENAL ULCER [None]
